FAERS Safety Report 18886185 (Version 1)
Quarter: 2021Q1

REPORT INFORMATION
  Report Type: Spontaneous
  Country: JP (occurrence: JP)
  Receive Date: 20210212
  Receipt Date: 20210212
  Transmission Date: 20210420
  Serious: Yes (Hospitalization, Other)
  Sender: FDA-Public Use
  Company Number: JP-009507513-1205USA00271

PATIENT
  Age: 80 Year
  Sex: Male

DRUGS (28)
  1. JANUVIA [Suspect]
     Active Substance: SITAGLIPTIN PHOSPHATE
     Dosage: 50 MG, DAILY
     Route: 048
     Dates: start: 20100312, end: 20100724
  2. JANUVIA [Suspect]
     Active Substance: SITAGLIPTIN PHOSPHATE
     Dosage: 50 MG, DAILY
     Route: 048
     Dates: start: 20100927
  3. AMN?107 [Suspect]
     Active Substance: NILOTINIB
     Dosage: 400 MG, DAILY
     Route: 048
     Dates: start: 20100326, end: 20100724
  4. GLUCOBAY [Concomitant]
     Active Substance: ACARBOSE
     Indication: DIABETES MELLITUS
     Dosage: 150 MG, UNK
     Route: 048
     Dates: start: 20080611, end: 20100122
  5. AMARYL [Suspect]
     Active Substance: GLIMEPIRIDE
     Dosage: 1 MG,DAILY
     Route: 048
     Dates: start: 20100312, end: 20100422
  6. AMN?107 [Suspect]
     Active Substance: NILOTINIB
     Dosage: 400 MG DAILY
     Route: 048
     Dates: start: 20090807, end: 20091211
  7. STOGAR [Concomitant]
     Active Substance: LAFUTIDINE
     Dosage: 20 MG, UNK
     Route: 048
     Dates: start: 20090512
  8. GLIMICRON [Concomitant]
     Active Substance: GLICLAZIDE
     Indication: DIABETES MELLITUS
     Dosage: 20 MILLIGRAM
     Dates: start: 20120320
  9. AMARYL [Suspect]
     Active Substance: GLIMEPIRIDE
     Dosage: 3 MG, DAILY
     Route: 048
     Dates: start: 20090821, end: 20100310
  10. GLIMEPIRIDE. [Concomitant]
     Active Substance: GLIMEPIRIDE
     Indication: DIABETES MELLITUS
     Dosage: 1 MG, UNK
     Route: 048
     Dates: start: 20110510, end: 20120116
  11. SENNA [Concomitant]
     Active Substance: SENNA LEAF\SENNOSIDES\SENNOSIDES A AND B
     Indication: CONSTIPATION
     Dosage: 3 G, UNK
     Route: 048
     Dates: start: 20101108
  12. SENNOSIDES. [Concomitant]
     Active Substance: SENNOSIDES
     Indication: DIABETES MELLITUS
     Dosage: UNK
  13. AMN?107 [Suspect]
     Active Substance: NILOTINIB
     Dosage: 400 MG, DAILY
     Route: 048
     Dates: start: 20091218, end: 20100308
  14. HYDREA [Concomitant]
     Active Substance: HYDROXYUREA
     Indication: CHRONIC MYELOID LEUKAEMIA
     Dosage: 1000 MG, UNK
     Route: 048
     Dates: end: 20090508
  15. KAMAG G [Concomitant]
     Active Substance: MAGNESIUM OXIDE
     Indication: CONSTIPATION
     Dosage: UNK
  16. AMARYL [Suspect]
     Active Substance: GLIMEPIRIDE
     Indication: DIABETES MELLITUS
     Dosage: 1 MG,DAILY
     Route: 048
     Dates: start: 20081217, end: 20090806
  17. AMARYL [Suspect]
     Active Substance: GLIMEPIRIDE
     Dosage: 2 MG, DAILY
     Route: 048
     Dates: start: 20100423, end: 20110509
  18. AMN?107 [Suspect]
     Active Substance: NILOTINIB
     Indication: CHRONIC MYELOID LEUKAEMIA
     Dosage: 800 MG, DAILY
     Route: 048
     Dates: start: 20090508, end: 20090512
  19. AMN?107 [Suspect]
     Active Substance: NILOTINIB
     Dosage: 400 MG, DAILY
     Route: 048
     Dates: start: 20100809, end: 20101206
  20. AMN?107 [Suspect]
     Active Substance: NILOTINIB
     Dosage: 400 MG, DAILY
     Route: 048
     Dates: start: 20101213, end: 20110627
  21. KAMAG G [Concomitant]
     Active Substance: MAGNESIUM OXIDE
     Indication: DIABETES MELLITUS
     Dosage: 3 G, UNK
     Route: 048
     Dates: start: 20080402, end: 20090822
  22. AMN?107 [Suspect]
     Active Substance: NILOTINIB
     Dosage: 800 MG DAILY
     Route: 048
     Dates: start: 20090522, end: 20090602
  23. AMN?107 [Suspect]
     Active Substance: NILOTINIB
     Dosage: 400 MG DAILY
     Route: 048
     Dates: start: 20090612, end: 20090724
  24. TICLOPIDINE HYDROCHLORIDE. [Concomitant]
     Active Substance: TICLOPIDINE HYDROCHLORIDE
     Dosage: 100 MILLIGRAM
     Route: 048
     Dates: start: 20120511
  25. JANUVIA [Suspect]
     Active Substance: SITAGLIPTIN PHOSPHATE
     Indication: DIABETES MELLITUS
     Dosage: 50 MG, DAILY
     Route: 048
     Dates: start: 20100123, end: 20100310
  26. AMARYL [Suspect]
     Active Substance: GLIMEPIRIDE
     Dosage: 2 MG,DAILY
     Route: 048
     Dates: start: 20090807, end: 20090820
  27. SENNOSIDES. [Concomitant]
     Active Substance: SENNOSIDES
     Indication: CONSTIPATION
     Dosage: 24 MG, UNK
     Route: 048
     Dates: start: 20080402, end: 20101108
  28. PLAVIX [Concomitant]
     Active Substance: CLOPIDOGREL BISULFATE
     Dosage: 50 MILLIGRAM
     Route: 048
     Dates: start: 20120227, end: 20120511

REACTIONS (17)
  - Electrocardiogram QT prolonged [Recovered/Resolved]
  - Abdominal discomfort [Recovered/Resolved]
  - Blood phosphorus decreased [Not Recovered/Not Resolved]
  - Hypoglycaemia [Recovered/Resolved]
  - Rash [Recovered/Resolved]
  - Abdominal distension [Recovered/Resolved]
  - Decreased appetite [Recovered/Resolved]
  - Altered state of consciousness [Unknown]
  - Bacterial infection [Recovered/Resolved]
  - Abdominal pain upper [Recovered/Resolved]
  - Blood potassium decreased [Recovered/Resolved]
  - Muscular weakness [Recovered/Resolved]
  - Weight decreased [Unknown]
  - Platelet count decreased [Not Recovered/Not Resolved]
  - Rash papular [Not Recovered/Not Resolved]
  - Lacunar infarction [Recovered/Resolved]
  - Blood glucose increased [Recovered/Resolved]

NARRATIVE: CASE EVENT DATE: 20090512
